FAERS Safety Report 10258693 (Version 1)
Quarter: 2014Q2

REPORT INFORMATION
  Report Type: Spontaneous
  Country: US (occurrence: US)
  Receive Date: 20140625
  Receipt Date: 20140625
  Transmission Date: 20141212
  Serious: Yes (Other)
  Sender: FDA-Public Use
  Company Number: US-ASTELLAS-2013US010310

PATIENT
  Age: 52 Year
  Sex: Female

DRUGS (2)
  1. VESICARE [Suspect]
     Indication: PRODUCT USED FOR UNKNOWN INDICATION
     Route: 048
     Dates: start: 201308, end: 20130906
  2. VESICARE [Suspect]
     Route: 048
     Dates: start: 20130916

REACTIONS (4)
  - Urinary retention [Recovered/Resolved]
  - Abdominal distension [Unknown]
  - Stress [Unknown]
  - Nausea [Unknown]
